FAERS Safety Report 11615158 (Version 1)
Quarter: 2015Q4

REPORT INFORMATION
  Report Type: Spontaneous
  Country: US (occurrence: US)
  Receive Date: 20151009
  Receipt Date: 20151009
  Transmission Date: 20160304
  Serious: No
  Sender: FDA-Public Use
  Company Number: US-PFIZER INC-2015322692

PATIENT

DRUGS (2)
  1. ADVIL [Suspect]
     Active Substance: IBUPROFEN
     Indication: HEADACHE
     Dosage: 2 DF, UNK
  2. ADVIL [Suspect]
     Active Substance: IBUPROFEN
     Dosage: 3 DF, UNK

REACTIONS (2)
  - Intentional product use issue [Unknown]
  - Drug ineffective [Unknown]
